FAERS Safety Report 7945606 (Version 3)
Quarter: 2013Q1

REPORT INFORMATION
  Report Type: Spontaneous
  Country: MX (occurrence: MX)
  Receive Date: 20110516
  Receipt Date: 20130318
  Transmission Date: 20140127
  Serious: Yes (Death, Hospitalization, Other)
  Sender: FDA-Public Use
  Company Number: PHHY2011MX40390

PATIENT
  Age: 72 Year
  Sex: Male

DRUGS (1)
  1. CO-DIOVAN [Suspect]
     Indication: HYPERTENSION
     Dosage: 1 DF (160 MG VALS/ 25 MG HCTZ), DAILY
     Route: 048
     Dates: start: 201103, end: 20110425

REACTIONS (8)
  - Cardiac arrest [Fatal]
  - Respiratory arrest [Fatal]
  - Fall [Fatal]
  - Cardiac failure [Fatal]
  - Cardiac disorder [Unknown]
  - Heart rate increased [Unknown]
  - Dyspnoea [Unknown]
  - Femur fracture [Unknown]
